FAERS Safety Report 11228135 (Version 1)
Quarter: 2015Q2

REPORT INFORMATION
  Report Type: Spontaneous
  Country: US (occurrence: US)
  Receive Date: 20150630
  Receipt Date: 20150630
  Transmission Date: 20150821
  Serious: Yes (Other)
  Sender: FDA-Public Use
  Company Number: US-BRISTOL-MYERS SQUIBB COMPANY-BMS-2015-041123

PATIENT
  Age: 61 Year
  Sex: Female

DRUGS (5)
  1. SPRYCEL [Suspect]
     Active Substance: DASATINIB
     Indication: CHRONIC MYELOID LEUKAEMIA
     Dosage: 1 TAB, QD
     Route: 048
     Dates: start: 20140212
  2. SPRYCEL [Suspect]
     Active Substance: DASATINIB
     Indication: BRONCHIAL CARCINOMA
  3. TAXOL [Suspect]
     Active Substance: PACLITAXEL
     Indication: PRODUCT USED FOR UNKNOWN INDICATION
     Route: 042
  4. CARBOPLATIN. [Suspect]
     Active Substance: CARBOPLATIN
     Indication: PRODUCT USED FOR UNKNOWN INDICATION
     Route: 042
  5. SPRYCEL [Suspect]
     Active Substance: DASATINIB
     Indication: SKIN CANCER

REACTIONS (4)
  - Off label use [Unknown]
  - Cough [Unknown]
  - Malignant neoplasm progression [Unknown]
  - Pancreatitis [Unknown]

NARRATIVE: CASE EVENT DATE: 20150314
